FAERS Safety Report 12675942 (Version 1)
Quarter: 2016Q3

REPORT INFORMATION
  Report Type: Spontaneous
  Country: US (occurrence: US)
  Receive Date: 20160823
  Receipt Date: 20160823
  Transmission Date: 20161109
  Serious: Yes (Other)
  Sender: FDA-Public Use
  Company Number: US-PAR PHARMACEUTICAL COMPANIES-2016SCPR015764

PATIENT

DRUGS (3)
  1. MULTISTRAIN PROBIOTIC [Concomitant]
     Indication: LYME DISEASE
     Dosage: 20 BILLION CFU, UNKNOWN
     Route: 065
     Dates: start: 2011
  2. SACCHAROMYCES BOULARDII [Concomitant]
     Active Substance: SACCHAROMYCES CEREVISIAE
     Indication: LYME DISEASE
     Dosage: 500 MG, UNKNOWN
     Route: 065
     Dates: start: 2011
  3. DOXYCYCLINE. [Suspect]
     Active Substance: DOXYCYCLINE
     Indication: LYME DISEASE
     Dosage: 100 MG, BID
     Route: 048
     Dates: start: 2011, end: 2011

REACTIONS (2)
  - Product use issue [Unknown]
  - Jarisch-Herxheimer reaction [Recovering/Resolving]

NARRATIVE: CASE EVENT DATE: 2011
